FAERS Safety Report 10454216 (Version 2)
Quarter: 2014Q3

REPORT INFORMATION
  Report Type: Spontaneous
  Country: US (occurrence: US)
  Receive Date: 20140915
  Receipt Date: 20140919
  Transmission Date: 20150326
  Serious: Yes (Other)
  Sender: FDA-Public Use
  Company Number: US-PFIZER INC-2014255133

PATIENT
  Age: 57 Year
  Sex: Female

DRUGS (2)
  1. XANAX [Suspect]
     Active Substance: ALPRAZOLAM
     Dosage: UNK
  2. SKELAXIN [Suspect]
     Active Substance: METAXALONE
     Dosage: UNK

REACTIONS (6)
  - Respiratory failure [Unknown]
  - Drug screen positive [Unknown]
  - Myocardial infarction [Unknown]
  - Ketoacidosis [Unknown]
  - Overdose [Unknown]
  - Metabolic encephalopathy [Unknown]
